FAERS Safety Report 24138513 (Version 2)
Quarter: 2024Q3

REPORT INFORMATION
  Report Type: Spontaneous
  Country: US (occurrence: US)
  Receive Date: 20240725
  Receipt Date: 20240801
  Transmission Date: 20241017
  Serious: No
  Sender: SEBELA
  Company Number: US-SEBELA IRELAND LIMITED-2023SEB00082

PATIENT
  Sex: Male

DRUGS (3)
  1. PEXEVA [Suspect]
     Active Substance: PAROXETINE MESYLATE
     Dosage: UNK HIGHER DOSE
  2. PEXEVA [Suspect]
     Active Substance: PAROXETINE MESYLATE
     Dosage: 10 MG
  3. PAROXETINE [Suspect]
     Active Substance: PAROXETINE
     Dosage: UNK

REACTIONS (3)
  - Feeling abnormal [Unknown]
  - Drug ineffective [Unknown]
  - Intentional product use issue [Unknown]
